FAERS Safety Report 17791324 (Version 1)
Quarter: 2020Q2

REPORT INFORMATION
  Report Type: Spontaneous
  Country: GR (occurrence: GR)
  Receive Date: 20200515
  Receipt Date: 20200515
  Transmission Date: 20200714
  Serious: Yes (Death, Other)
  Sender: FDA-Public Use
  Company Number: GR-ACTELION-A-CH2020-204990

PATIENT
  Age: 77 Year
  Sex: Male

DRUGS (2)
  1. BOSENTAN. [Suspect]
     Active Substance: BOSENTAN
     Indication: PULMONARY HYPERTENSION
     Route: 048
  2. SILDENAFIL. [Concomitant]
     Active Substance: SILDENAFIL

REACTIONS (7)
  - Atrial fibrillation [Fatal]
  - Balloon atrial septostomy [Unknown]
  - Pericardial effusion [Unknown]
  - Hypoxia [Fatal]
  - Haemodynamic instability [Unknown]
  - Right ventricular dilatation [Unknown]
  - Right ventricular failure [Unknown]
